FAERS Safety Report 4646826-0 (Version None)
Quarter: 2005Q2

REPORT INFORMATION
  Report Type: 
  Country: None (occurrence: None)
  Receive Date: 20050331
  Receipt Date: 20050225
  Transmission Date: 20051028
  Serious: No
  Sender: FDA-Public Use
  Company Number: 05P-163-0292098-00

PATIENT

DRUGS (1)
  1. HUMIRA [Suspect]
     Dosage: 1 IN 2 WK, SUBCUTANEOUS
     Route: 058

REACTIONS (2)
  - ARTHRALGIA [None]
  - HEADACHE [None]
